FAERS Safety Report 17269252 (Version 3)
Quarter: 2020Q3

REPORT INFORMATION
  Report Type: Spontaneous
  Country: US (occurrence: US)
  Receive Date: 20200114
  Receipt Date: 20200713
  Transmission Date: 20201102
  Serious: No
  Sender: FDA-Public Use
  Company Number: US-VANDA PHARMACEUTICALS, INC-2019TASUS003202

PATIENT
  Sex: Male

DRUGS (1)
  1. HETLIOZ [Suspect]
     Active Substance: TASIMELTEON
     Indication: NON-24-HOUR SLEEP-WAKE DISORDER
     Dosage: 20 MG, Q 24 HOURS BEFORE BEDTIME
     Route: 048

REACTIONS (4)
  - Irregular sleep phase [Unknown]
  - Hypersomnia [Unknown]
  - Drug ineffective [Unknown]
  - Somnolence [Unknown]
